FAERS Safety Report 7366297-3 (Version None)
Quarter: 2011Q1

REPORT INFORMATION
  Report Type: 
  Country: None (occurrence: None)
  Receive Date: 20110322
  Receipt Date: 20110310
  Transmission Date: 20110831
  Serious: Yes (Other)
  Sender: FDA-Public Use
  Company Number: US-SANOFI-AVENTIS-2011SA015858

PATIENT
  Age: 75 Year
  Sex: Male

DRUGS (4)
  1. COUMADIN [Concomitant]
  2. METOPROLOL SUCCINATE [Concomitant]
  3. MULTAQ [Suspect]
     Route: 048
     Dates: start: 20110101
  4. MULTAQ [Suspect]
     Indication: ATRIAL FIBRILLATION
     Route: 048
     Dates: start: 20091001, end: 20110101

REACTIONS (2)
  - INCORRECT DOSE ADMINISTERED [None]
  - ATRIAL FIBRILLATION [None]
